FAERS Safety Report 18434288 (Version 5)
Quarter: 2021Q4

REPORT INFORMATION
  Report Type: Other
  Country: CA (occurrence: CA)
  Receive Date: 20201028
  Receipt Date: 20211229
  Transmission Date: 20220303
  Serious: Yes (Hospitalization, Other)
  Sender: FDA-Public Use
  Company Number: CA-CELLTRION INC.-2020CA029451

PATIENT

DRUGS (14)
  1. RITUXIMAB [Suspect]
     Active Substance: RITUXIMAB
     Indication: Rheumatoid arthritis
     Dosage: 1000 MG, 1 EVERY 15 DAYS
     Route: 042
  2. RITUXIMAB [Suspect]
     Active Substance: RITUXIMAB
     Dosage: UNK
     Route: 042
  3. ACETAMINOPHEN [Concomitant]
     Active Substance: ACETAMINOPHEN
     Indication: Premedication
     Dosage: 650 MG
     Route: 048
  4. ATORVASTATIN [Concomitant]
     Active Substance: ATORVASTATIN
     Route: 048
  5. DILAUDID [Concomitant]
     Active Substance: HYDROMORPHONE HYDROCHLORIDE
  6. DIPHENHYDRAMINE [Concomitant]
     Active Substance: DIPHENHYDRAMINE
     Indication: Premedication
     Dosage: 50 MG
     Route: 048
  7. HYDROXYCHLOROQUINE SULFATE [Concomitant]
     Active Substance: HYDROXYCHLOROQUINE SULFATE
  8. METHOTREXATE [Concomitant]
     Active Substance: METHOTREXATE
     Route: 048
  9. METHYLPREDNISOLONE [Concomitant]
     Active Substance: METHYLPREDNISOLONE
     Indication: Premedication
     Dosage: 100 MG
     Route: 042
  10. MICARDIS [Concomitant]
     Active Substance: TELMISARTAN
  11. MORPHINE [Concomitant]
     Active Substance: MORPHINE
  12. PRAVASTATIN [Concomitant]
     Active Substance: PRAVASTATIN
  13. TELMISARTAN [Concomitant]
     Active Substance: TELMISARTAN
  14. DICLOFENAC [Concomitant]
     Active Substance: DICLOFENAC

REACTIONS (14)
  - Abdominal hernia [Unknown]
  - Blood pressure diastolic decreased [Unknown]
  - Blood pressure systolic increased [Unknown]
  - Diabetes mellitus [Unknown]
  - Heart rate decreased [Unknown]
  - Orthostatic hypotension [Unknown]
  - Arthralgia [Unknown]
  - Blood pressure increased [Unknown]
  - Blood pressure fluctuation [Unknown]
  - Hypotension [Unknown]
  - Infusion related reaction [Unknown]
  - Pyelonephritis [Unknown]
  - Drug ineffective [Unknown]
  - Off label use [Unknown]
